FAERS Safety Report 10120768 (Version 2)
Quarter: 2014Q3

REPORT INFORMATION
  Report Type: Report from Study
  Country: JP (occurrence: JP)
  Receive Date: 20140425
  Receipt Date: 20140721
  Transmission Date: 20150326
  Serious: Yes (Other)
  Sender: FDA-Public Use
  Company Number: JP-GLAXOSMITHKLINE-B0921596A

PATIENT
  Age: 73 Year
  Sex: Male

DRUGS (53)
  1. PREDNISOLONE. [Concomitant]
     Active Substance: PREDNISOLONE
     Dosage: 100MG PER DAY
     Route: 065
     Dates: start: 20131003, end: 20131003
  2. PREDNISOLONE. [Concomitant]
     Active Substance: PREDNISOLONE
     Dosage: 100MG PER DAY
     Route: 065
     Dates: start: 20131010, end: 20131010
  3. ACETAMINOPHEN. [Concomitant]
     Active Substance: ACETAMINOPHEN
     Dosage: 400MG PER DAY
     Route: 065
     Dates: start: 20130822, end: 20130822
  4. ACETAMINOPHEN. [Concomitant]
     Active Substance: ACETAMINOPHEN
     Dosage: 400MG PER DAY
     Route: 065
     Dates: start: 20130926, end: 20130926
  5. ACETAMINOPHEN. [Concomitant]
     Active Substance: ACETAMINOPHEN
     Dosage: 400MG PER DAY
     Route: 065
     Dates: start: 20131010, end: 20131010
  6. ACETAMINOPHEN. [Concomitant]
     Active Substance: ACETAMINOPHEN
     Dosage: 400MG PER DAY
     Route: 065
     Dates: start: 20131212, end: 20131212
  7. POLARAMINE [Concomitant]
     Active Substance: DEXCHLORPHENIRAMINE MALEATE
     Dosage: 2MG PER DAY
     Route: 065
     Dates: start: 20131010, end: 20131010
  8. ARZERRA [Suspect]
     Active Substance: OFATUMUMAB
     Indication: CHRONIC LYMPHOCYTIC LEUKAEMIA
     Dosage: 2000MG PER DAY
     Route: 042
     Dates: start: 20131003, end: 20131003
  9. PREDNISOLONE. [Concomitant]
     Active Substance: PREDNISOLONE
     Dosage: 100MG PER DAY
     Route: 065
     Dates: start: 20131017, end: 20131017
  10. ACETAMINOPHEN. [Concomitant]
     Active Substance: ACETAMINOPHEN
     Dosage: 400MG PER DAY
     Route: 065
     Dates: start: 20130829, end: 20130829
  11. ACETAMINOPHEN. [Concomitant]
     Active Substance: ACETAMINOPHEN
     Dosage: 400MG PER DAY
     Route: 065
     Dates: start: 20130912, end: 20130912
  12. POLARAMINE [Concomitant]
     Active Substance: DEXCHLORPHENIRAMINE MALEATE
     Dosage: 2MG PER DAY
     Route: 065
     Dates: start: 20131003, end: 20131003
  13. PREDNISOLONE. [Concomitant]
     Active Substance: PREDNISOLONE
     Dosage: 100MG PER DAY
     Route: 065
     Dates: start: 20130912, end: 20130912
  14. ACETAMINOPHEN. [Concomitant]
     Active Substance: ACETAMINOPHEN
     Dosage: 400MG PER DAY
     Route: 065
     Dates: start: 20130919, end: 20130919
  15. POLARAMINE [Concomitant]
     Active Substance: DEXCHLORPHENIRAMINE MALEATE
     Dosage: 2MG PER DAY
     Route: 065
     Dates: start: 20140109, end: 20140109
  16. POLARAMINE [Concomitant]
     Active Substance: DEXCHLORPHENIRAMINE MALEATE
     Dosage: 2MG PER DAY
     Route: 065
     Dates: start: 20140206, end: 20140206
  17. MICARDIS [Concomitant]
     Active Substance: TELMISARTAN
     Indication: HYPERTENSION
     Dosage: 20MG PER DAY
     Route: 048
  18. ACETAMINOPHEN. [Concomitant]
     Active Substance: ACETAMINOPHEN
     Dosage: 400MG PER DAY
     Route: 065
     Dates: start: 20131114, end: 20131114
  19. POLARAMINE [Concomitant]
     Active Substance: DEXCHLORPHENIRAMINE MALEATE
     Dosage: 2MG PER DAY
     Route: 065
     Dates: start: 20130829, end: 20130829
  20. PREDNISOLONE. [Concomitant]
     Active Substance: PREDNISOLONE
     Dosage: 100MG PER DAY
     Route: 065
     Dates: start: 20130822, end: 20130822
  21. PREDNISOLONE. [Concomitant]
     Active Substance: PREDNISOLONE
     Dosage: 100MG PER DAY
     Route: 065
     Dates: start: 20130829, end: 20130829
  22. PREDNISOLONE. [Concomitant]
     Active Substance: PREDNISOLONE
     Dosage: 100MG PER DAY
     Route: 065
     Dates: start: 20131114, end: 20131114
  23. PREDNISOLONE. [Concomitant]
     Active Substance: PREDNISOLONE
     Dosage: 100MG PER DAY
     Route: 065
     Dates: start: 20140109, end: 20140109
  24. ACETAMINOPHEN. [Concomitant]
     Active Substance: ACETAMINOPHEN
     Dosage: 400MG PER DAY
     Route: 065
     Dates: start: 20140109, end: 20140109
  25. POLARAMINE [Concomitant]
     Active Substance: DEXCHLORPHENIRAMINE MALEATE
     Dosage: 2MG PER DAY
     Route: 065
     Dates: start: 20130822, end: 20130822
  26. PREDNISOLONE. [Concomitant]
     Active Substance: PREDNISOLONE
     Dosage: 100MG PER DAY
     Route: 065
     Dates: start: 20130919, end: 20130919
  27. PREDNISOLONE. [Concomitant]
     Active Substance: PREDNISOLONE
     Dosage: 100MG PER DAY
     Route: 065
     Dates: start: 20140206, end: 20140206
  28. ACETAMINOPHEN. [Concomitant]
     Active Substance: ACETAMINOPHEN
     Dosage: 400MG PER DAY
     Route: 065
     Dates: start: 20140206, end: 20140206
  29. POLARAMINE [Concomitant]
     Active Substance: DEXCHLORPHENIRAMINE MALEATE
     Dosage: 2MG PER DAY
     Route: 065
     Dates: start: 20131114, end: 20131114
  30. POLARAMINE [Concomitant]
     Active Substance: DEXCHLORPHENIRAMINE MALEATE
     Dosage: 2MG PER DAY
     Route: 065
     Dates: start: 20131212, end: 20131212
  31. GLACTIV [Concomitant]
     Active Substance: SITAGLIPTIN
     Indication: DIABETES MELLITUS
     Dosage: 100MG PER DAY
     Route: 048
  32. AMLODIN [Concomitant]
     Active Substance: AMLODIPINE BESYLATE
     Indication: HYPERTENSION
     Dosage: 5MG PER DAY
     Route: 048
  33. ARZERRA [Suspect]
     Active Substance: OFATUMUMAB
     Indication: CHRONIC LYMPHOCYTIC LEUKAEMIA
     Dosage: 2000MG PER DAY
     Route: 042
     Dates: start: 20130829, end: 20130829
  34. ARZERRA [Suspect]
     Active Substance: OFATUMUMAB
     Indication: CHRONIC LYMPHOCYTIC LEUKAEMIA
     Dosage: 2000MG PER DAY
     Route: 042
     Dates: start: 20130919, end: 20130919
  35. ARZERRA [Suspect]
     Active Substance: OFATUMUMAB
     Indication: CHRONIC LYMPHOCYTIC LEUKAEMIA
     Dosage: 2000MG PER DAY
     Route: 042
     Dates: start: 20130926, end: 20130926
  36. VALTREX [Suspect]
     Active Substance: VALACYCLOVIR HYDROCHLORIDE
     Indication: INFECTION PROPHYLAXIS
     Dosage: 500MG PER DAY
     Route: 048
     Dates: start: 201305
  37. BAKTAR [Suspect]
     Active Substance: SULFAMETHOXAZOLE\TRIMETHOPRIM
     Indication: INFECTION PROPHYLAXIS
     Dosage: 1IUAX PER DAY
     Route: 048
  38. PREDNISOLONE. [Concomitant]
     Active Substance: PREDNISOLONE
     Dosage: 100MG PER DAY
     Route: 065
     Dates: start: 20131212, end: 20131212
  39. ACETAMINOPHEN. [Concomitant]
     Active Substance: ACETAMINOPHEN
     Dosage: 400MG PER DAY
     Route: 065
     Dates: start: 20131017, end: 20131017
  40. POLARAMINE [Concomitant]
     Active Substance: DEXCHLORPHENIRAMINE MALEATE
     Dosage: 2MG PER DAY
     Route: 065
     Dates: start: 20130912, end: 20130912
  41. POLARAMINE [Concomitant]
     Active Substance: DEXCHLORPHENIRAMINE MALEATE
     Dosage: 2MG PER DAY
     Route: 065
     Dates: start: 20130926, end: 20130926
  42. POLARAMINE [Concomitant]
     Active Substance: DEXCHLORPHENIRAMINE MALEATE
     Dosage: 2MG PER DAY
     Route: 065
     Dates: start: 20131017, end: 20131017
  43. ARZERRA [Suspect]
     Active Substance: OFATUMUMAB
     Indication: CHRONIC LYMPHOCYTIC LEUKAEMIA
     Dosage: 2000MG PER DAY
     Route: 042
     Dates: start: 20131010, end: 20131010
  44. ARZERRA [Suspect]
     Active Substance: OFATUMUMAB
     Indication: CHRONIC LYMPHOCYTIC LEUKAEMIA
     Dosage: 2000MG PER DAY
     Route: 042
     Dates: start: 20131114, end: 20131114
  45. ARZERRA [Suspect]
     Active Substance: OFATUMUMAB
     Indication: CHRONIC LYMPHOCYTIC LEUKAEMIA
     Dosage: 2000MG PER DAY
     Route: 042
     Dates: start: 20140206, end: 20140206
  46. PREDNISOLONE. [Concomitant]
     Active Substance: PREDNISOLONE
     Dosage: 100MG PER DAY
     Route: 065
     Dates: start: 20130926, end: 20130926
  47. ACETAMINOPHEN. [Concomitant]
     Active Substance: ACETAMINOPHEN
     Dosage: 400MG PER DAY
     Route: 065
     Dates: start: 20131003, end: 20131003
  48. POLARAMINE [Concomitant]
     Active Substance: DEXCHLORPHENIRAMINE MALEATE
     Dosage: 2MG PER DAY
     Route: 065
     Dates: start: 20130919, end: 20130919
  49. ARZERRA [Suspect]
     Active Substance: OFATUMUMAB
     Indication: CHRONIC LYMPHOCYTIC LEUKAEMIA
     Dosage: 300MG PER DAY
     Route: 042
     Dates: start: 20130822, end: 20130822
  50. ARZERRA [Suspect]
     Active Substance: OFATUMUMAB
     Indication: CHRONIC LYMPHOCYTIC LEUKAEMIA
     Dosage: 2000MG PER DAY
     Route: 042
     Dates: start: 20130912, end: 20130912
  51. ARZERRA [Suspect]
     Active Substance: OFATUMUMAB
     Indication: CHRONIC LYMPHOCYTIC LEUKAEMIA
     Dosage: 2000MG PER DAY
     Route: 042
     Dates: start: 20131017, end: 20131017
  52. ARZERRA [Suspect]
     Active Substance: OFATUMUMAB
     Indication: CHRONIC LYMPHOCYTIC LEUKAEMIA
     Dosage: 2000MG PER DAY
     Route: 042
     Dates: start: 20131212, end: 20131212
  53. ARZERRA [Suspect]
     Active Substance: OFATUMUMAB
     Indication: CHRONIC LYMPHOCYTIC LEUKAEMIA
     Dosage: 2000MG PER DAY
     Route: 042
     Dates: start: 20140109, end: 20140109

REACTIONS (4)
  - Diarrhoea [Recovered/Resolved]
  - Cardiac failure [Recovered/Resolved]
  - Pyrexia [Recovered/Resolved]
  - Neutrophil count decreased [Recovered/Resolved]

NARRATIVE: CASE EVENT DATE: 20130822
